FAERS Safety Report 13114799 (Version 1)
Quarter: 2017Q1

REPORT INFORMATION
  Report Type: Spontaneous
  Country: CA (occurrence: CA)
  Receive Date: 20170113
  Receipt Date: 20170113
  Transmission Date: 20170428
  Serious: Yes (Hospitalization)
  Sender: FDA-Public Use
  Company Number: CA-PERRIGO-17CA000108

PATIENT
  Age: 25 Year
  Sex: Male

DRUGS (2)
  1. TESTOSTERONE ENANTHATE. [Suspect]
     Active Substance: TESTOSTERONE ENANTHATE
     Indication: MUSCLE BUILDING THERAPY
     Dosage: UNKNOWN, UNKNOWN
     Route: 030
  2. LIOTHYRONINE SODIUM (T3) [Suspect]
     Active Substance: LIOTHYRONINE SODIUM
     Indication: FAT EMBOLISM
     Dosage: UNK
     Route: 048

REACTIONS (4)
  - Ventricular dysfunction [Unknown]
  - Congestive cardiomyopathy [Unknown]
  - Hypertension [Unknown]
  - Hepatic lesion [Unknown]
